FAERS Safety Report 15175632 (Version 2)
Quarter: 2018Q3

REPORT INFORMATION
  Report Type: Report from Study
  Country: US (occurrence: US)
  Receive Date: 20180720
  Receipt Date: 20180810
  Transmission Date: 20181010
  Serious: No
  Sender: FDA-Public Use
  Company Number: US-ALEXION PHARMACEUTICALS INC.-A201809272

PATIENT
  Age: 12 Year
  Weight: 64.85 kg

DRUGS (2)
  1. STRENSIQ [Suspect]
     Active Substance: ASFOTASE ALFA
     Indication: HYPOPHOSPHATASIA
     Dosage: UNK
     Route: 058
     Dates: end: 20180620
  2. STRENSIQ [Suspect]
     Active Substance: ASFOTASE ALFA
     Dosage: UNK, TIW
     Route: 058
     Dates: end: 20180620

REACTIONS (3)
  - Myalgia [Unknown]
  - Arthralgia [Unknown]
  - Hypersensitivity [Unknown]

NARRATIVE: CASE EVENT DATE: 20180716
